FAERS Safety Report 5164813-3 (Version None)
Quarter: 2006Q4

REPORT INFORMATION
  Report Type: 
  Country: None (occurrence: None)
  Receive Date: 20061205
  Receipt Date: 20061127
  Transmission Date: 20070319
  Serious: Yes (Hospitalization)
  Sender: FDA-Public Use
  Company Number: 2006CG01947

PATIENT
  Age: 76 Year
  Sex: Female
  Weight: 45 kg

DRUGS (15)
  1. TENORMIN [Suspect]
     Route: 048
     Dates: end: 20060811
  2. TENORMIN [Suspect]
     Route: 048
     Dates: start: 20060812
  3. CORDARONE [Suspect]
     Route: 048
     Dates: end: 20060811
  4. ASPIRIN [Suspect]
     Route: 048
     Dates: end: 20060811
  5. ZOCOR [Suspect]
     Route: 048
     Dates: end: 20060809
  6. ART 50 [Suspect]
     Route: 048
     Dates: end: 20060809
  7. EFFEXOR [Suspect]
     Route: 048
     Dates: end: 20060810
  8. MYSOLINE [Concomitant]
     Route: 048
     Dates: end: 20060811
  9. METFORMIN HCL [Concomitant]
     Dates: end: 20060809
  10. DOLIPRANE [Concomitant]
     Dates: end: 20060809
  11. REQUIP [Concomitant]
     Dates: end: 20060811
  12. REQUIP [Concomitant]
     Dates: start: 20060816
  13. SINEMET [Concomitant]
     Dosage: 150 + 600 MG DAILY
     Dates: end: 20060811
  14. SINEMET [Concomitant]
     Dosage: 150 + 600 MG DAILY
     Dates: start: 20060816
  15. ISOCARD [Concomitant]
     Indication: CHEST PAIN
     Route: 055

REACTIONS (7)
  - ANOREXIA [None]
  - CYTOLYTIC HEPATITIS [None]
  - DYSPNOEA [None]
  - GENERAL PHYSICAL HEALTH DETERIORATION [None]
  - HYPONATRAEMIA [None]
  - RENAL FAILURE [None]
  - WEIGHT DECREASED [None]
